FAERS Safety Report 15145482 (Version 1)
Quarter: 2018Q3

REPORT INFORMATION
  Report Type: Report from Study
  Country: PL (occurrence: PL)
  Receive Date: 20180713
  Receipt Date: 20180713
  Transmission Date: 20181010
  Serious: Yes (Hospitalization, Other)
  Sender: FDA-Public Use
  Company Number: PL-BRISTOL-MYERS SQUIBB COMPANY-BMS-2018-066241

PATIENT
  Age: 73 Year
  Sex: Male
  Weight: 85.5 kg

DRUGS (19)
  1. BERODUAL N [Concomitant]
     Active Substance: FENOTEROL HYDROBROMIDE\IPRATROPIUM BROMIDE
     Indication: BRONCHITIS
     Dosage: UNK, BID
     Route: 065
     Dates: start: 20180602
  2. MILURIT [Concomitant]
     Active Substance: ALLOPURINOL
     Indication: PROPHYLAXIS
     Dosage: 150 MG, BID
     Route: 048
     Dates: start: 20161220
  3. HEVIRAN                            /00587301/ [Concomitant]
     Indication: INFECTION PROPHYLAXIS
     Dosage: 800 MG, BID
     Route: 048
     Dates: start: 20160707
  4. BIOFUROKSYM [Concomitant]
     Active Substance: CEFUROXIME SODIUM
     Indication: BRONCHITIS
     Dosage: 1.5 G, BID
     Route: 048
     Dates: start: 20180526
  5. THEALOZ [Concomitant]
     Indication: CATARACT
     Dosage: 1 DF: 4 DOSE, QD
     Route: 047
     Dates: start: 20171005
  6. TOBROSOPT DEX [Concomitant]
     Indication: CATARACT
     Dosage: 1 DF: 4 DOSE, QD
     Route: 047
     Dates: start: 20170525
  7. EBIVOL [Concomitant]
     Indication: HYPERTENSION
     Dosage: 5 MG, BID
     Route: 048
     Dates: start: 201806
  8. PARACETAMOL [Concomitant]
     Active Substance: ACETAMINOPHEN
     Indication: BRONCHITIS
     Dosage: 1 G, BID
     Route: 048
     Dates: start: 20180526
  9. ATRAM [Concomitant]
     Indication: HYPERTENSION
     Dosage: 25 MG, BID
     Route: 048
     Dates: start: 20161001
  10. BISEPTOL [Concomitant]
     Active Substance: SULFAMETHOXAZOLE\TRIMETHOPRIM
     Indication: INFECTION PROPHYLAXIS
     Dosage: 980 MG, Q3WK
     Route: 048
     Dates: start: 20160707
  11. NIVOLUMAB [Suspect]
     Active Substance: NIVOLUMAB
     Indication: ACUTE LYMPHOCYTIC LEUKAEMIA
     Dosage: 258 MG, Q2WK
     Route: 042
     Dates: start: 20160623, end: 20180524
  12. IBRUTINIB [Suspect]
     Active Substance: IBRUTINIB
     Indication: ACUTE LYMPHOCYTIC LEUKAEMIA
     Dosage: 560 MG, QD
     Route: 048
     Dates: start: 20160623, end: 20180626
  13. DEFLEGMIN [Concomitant]
     Indication: BRONCHITIS
     Dosage: UNK, BID
     Route: 047
     Dates: start: 20180602
  14. KLACID                             /00984601/ [Concomitant]
     Active Substance: CLARITHROMYCIN
     Indication: BRONCHITIS
     Dosage: 500 MG, BID
     Route: 048
     Dates: start: 20180602
  15. ATORVASTATINUM [Concomitant]
     Indication: HYPERCHOLESTEROLAEMIA
     Dosage: 20 MG, QD
     Route: 048
     Dates: start: 2006
  16. AMBROSAN [Concomitant]
     Indication: BRONCHITIS
     Dosage: 30 MG, BID
     Route: 048
     Dates: start: 20180526
  17. DICLOABAK [Concomitant]
     Active Substance: DICLOFENAC SODIUM
     Indication: CATARACT
     Dosage: 1 DF:4 DOSE, UNK
     Route: 047
     Dates: start: 20170525
  18. APO TAMIS [Concomitant]
     Indication: HYPERTENSION
     Dosage: 0.4 MG, BID
     Route: 048
     Dates: start: 20161001
  19. TENSART HCT [Concomitant]
     Indication: HYPERTENSION
     Dosage: UNK, BID
     Route: 048

REACTIONS (1)
  - Pneumonia fungal [Recovered/Resolved]

NARRATIVE: CASE EVENT DATE: 20180608
